FAERS Safety Report 9834854 (Version 1)
Quarter: 2014Q1

REPORT INFORMATION
  Report Type: Spontaneous
  Country: US (occurrence: US)
  Receive Date: 20140122
  Receipt Date: 20140122
  Transmission Date: 20141002
  Serious: No
  Sender: FDA-Public Use
  Company Number: US-BAUSCH-BL-2013-003518

PATIENT
  Age: 73 Year
  Sex: Female

DRUGS (4)
  1. ALAWAY [Suspect]
     Indication: OCULAR HYPERAEMIA
     Dosage: GTT; OPHTHALMIC
     Route: 047
  2. ALAWAY [Suspect]
     Indication: EYE IRRITATION
  3. CARMELLOSE SODIUM [Suspect]
     Indication: OCULAR HYPERAEMIA
  4. CARMELLOSE SODIUM [Suspect]
     Indication: EYE IRRITATION

REACTIONS (1)
  - Vision blurred [Recovered/Resolved]
